FAERS Safety Report 18521845 (Version 1)
Quarter: 2020Q4

REPORT INFORMATION
  Report Type: Spontaneous
  Country: DE (occurrence: DE)
  Receive Date: 20201119
  Receipt Date: 20201119
  Transmission Date: 20210114
  Serious: Yes (Hospitalization)
  Sender: FDA-Public Use
  Company Number: DE-TEVA-2020-DE-1849596

PATIENT
  Age: 65 Year
  Sex: Female

DRUGS (7)
  1. CLONIDIN [Concomitant]
     Active Substance: CLONIDINE
     Dosage: .075 MILLIGRAM DAILY;  1-0-0-0
     Route: 048
  2. THYRONAJOD 50 HENNING [Concomitant]
     Dosage: 1 DOSAGE FORMS DAILY; 0.05|0.15 MG, 1-0-0-0
     Route: 048
  3. METOPROLOL. [Suspect]
     Active Substance: METOPROLOL
     Dosage: .5 DOSAGE FORMS DAILY; 23.75 MG, 0.5-0-0-0
     Route: 048
  4. ACETYLSALICYLSAEURE [Concomitant]
     Active Substance: ASPIRIN
     Dosage: 100 MILLIGRAM DAILY; 1-0-0-0
     Route: 048
  5. RAMIPRIL. [Concomitant]
     Active Substance: RAMIPRIL
     Dosage: 10 MILLIGRAM DAILY; 1-0-1-0
     Route: 048
  6. EZETIMIB [Concomitant]
     Active Substance: EZETIMIBE
     Dosage: 10 MILLIGRAM DAILY; 1-0-0-0
     Route: 048
  7. CLOPIDOGREL [Concomitant]
     Active Substance: CLOPIDOGREL BISULFATE
     Dosage: 75 MILLIGRAM DAILY; 1-0-0-0
     Route: 048

REACTIONS (6)
  - Hypertension [Unknown]
  - Abdominal pain [Unknown]
  - General physical health deterioration [Unknown]
  - Product dose omission issue [Unknown]
  - Dry mouth [Unknown]
  - Malaise [Unknown]
